FAERS Safety Report 5091121-1 (Version None)
Quarter: 2006Q3

REPORT INFORMATION
  Report Type: 
  Country: None (occurrence: None)
  Receive Date: 20060829
  Receipt Date: 20060823
  Transmission Date: 20061208
  Serious: Yes (Other)
  Sender: FDA-Public Use
  Company Number: PHBS2006ZA12824

PATIENT
  Sex: Female

DRUGS (1)
  1. LIORESAL [Suspect]
     Dosage: 25 MG/DAY
     Route: 048
     Dates: end: 20060817

REACTIONS (3)
  - DELIRIUM [None]
  - DIALYSIS [None]
  - TREMOR [None]
